FAERS Safety Report 7258196-2 (Version None)
Quarter: 2011Q1

REPORT INFORMATION
  Report Type: 
  Country: None (occurrence: None)
  Receive Date: 20110129
  Receipt Date: 20100706
  Transmission Date: 20110831
  Serious: No
  Sender: FDA-Public Use
  Company Number: US-ABBOTT-10P-163-0655903-00

PATIENT
  Sex: Female
  Weight: 81.72 kg

DRUGS (6)
  1. HUMIRA [Suspect]
     Indication: RHEUMATOID ARTHRITIS
  2. LIPITOR [Concomitant]
     Indication: BLOOD CHOLESTEROL INCREASED
  3. ISONIAZID [Concomitant]
     Indication: TUBERCULOSIS
     Dates: start: 20100101
  4. HUMIRA [Suspect]
     Indication: PSORIASIS
     Dates: start: 20100501
  5. LIPITOR [Concomitant]
     Indication: PROPHYLAXIS
  6. HYDROCHLOROTHIAZIDE [Concomitant]
     Indication: HYPERTENSION

REACTIONS (4)
  - ASTHENIA [None]
  - INSOMNIA [None]
  - PARAESTHESIA [None]
  - FATIGUE [None]
